FAERS Safety Report 21559054 (Version 3)
Quarter: 2023Q4

REPORT INFORMATION
  Report Type: Report from Study
  Country: US (occurrence: US)
  Receive Date: 20221107
  Receipt Date: 20231227
  Transmission Date: 20240110
  Serious: Yes (Hospitalization, Disabling, Other)
  Sender: FDA-Public Use
  Company Number: US-TAKEDA-2021TUS073195

PATIENT
  Sex: Female

DRUGS (1)
  1. VEDOLIZUMAB [Suspect]
     Active Substance: VEDOLIZUMAB
     Indication: Crohn^s disease
     Dosage: 300 MILLIGRAM
     Route: 042

REACTIONS (7)
  - Crohn^s disease [Unknown]
  - Disability [Unknown]
  - Autoimmune disorder [Unknown]
  - COVID-19 [Unknown]
  - Lactose intolerance [Unknown]
  - Illness [Unknown]
  - Fistula [Recovered/Resolved]
